FAERS Safety Report 9106825 (Version 1)
Quarter: 2013Q1

REPORT INFORMATION
  Report Type: Report from Study
  Country: US (occurrence: US)
  Receive Date: 20130221
  Receipt Date: 20130221
  Transmission Date: 20140127
  Serious: Yes (Hospitalization)
  Sender: FDA-Public Use
  Company Number: GXBR2013US000623

PATIENT
  Age: 91 Year
  Sex: Male

DRUGS (10)
  1. DIGOXIN [Suspect]
     Dosage: UNK DF, UNK
  2. METOPROLOL [Suspect]
     Dosage: UNK DF, UNK
  3. SAXAGLIPTIN [Suspect]
     Indication: TYPE 2 DIABETES MELLITUS
     Dosage: UNK DF, UNK
     Dates: start: 20100730, end: 20110224
  4. PLACEBO [Suspect]
     Indication: TYPE 2 DIABETES MELLITUS
     Dosage: UNK DF, UNK
     Dates: start: 20100730, end: 20110224
  5. GLIMEPIRIDE [Suspect]
     Indication: TYPE 2 DIABETES MELLITUS
     Dosage: UNK DF, UNK
  6. ASPIRIN [Concomitant]
     Dosage: UNK DF, UNK
  7. ANGIOTENSIN CONVERTING ENZYME BLOCKERS [Concomitant]
     Dosage: UNK DF, UNK
  8. DIURETICS [Concomitant]
     Dosage: UNK DF, UNK
  9. NITRATES [Concomitant]
     Dosage: UNK DF, UNK
  10. ANTIARRHYTHMICS, CLASS I AND III [Concomitant]
     Dosage: UNK DF, UNK

REACTIONS (2)
  - Sick sinus syndrome [Recovered/Resolved]
  - Cellulitis [Recovered/Resolved]
